FAERS Safety Report 23347439 (Version 1)
Quarter: 2023Q4

REPORT INFORMATION
  Report Type: Spontaneous
  Country: JP (occurrence: JP)
  Receive Date: 20231228
  Receipt Date: 20231228
  Transmission Date: 20240109
  Serious: Yes (Other)
  Sender: FDA-Public Use
  Company Number: JP-MYLANLABS-2023M1136604

PATIENT
  Age: 23 Year
  Sex: Male

DRUGS (4)
  1. VENLAFAXINE HYDROCHLORIDE [Suspect]
     Active Substance: VENLAFAXINE HYDROCHLORIDE
     Indication: Product used for unknown indication
     Dosage: 825 MILLIGRAM
     Route: 048
  2. OLANZAPINE [Interacting]
     Active Substance: OLANZAPINE
     Indication: Product used for unknown indication
     Dosage: 560 MILLIGRAM
     Route: 048
  3. VALPROATE [Interacting]
     Active Substance: VALPROIC ACID
     Indication: Product used for unknown indication
     Dosage: 22000 MILLIGRAM
     Route: 048
  4. CLONAZEPAM [Suspect]
     Active Substance: CLONAZEPAM
     Indication: Product used for unknown indication
     Dosage: 50 MILLIGRAM
     Route: 048

REACTIONS (5)
  - Depressed level of consciousness [Unknown]
  - Glossoptosis [Unknown]
  - Hyperammonaemia [Unknown]
  - Labelled drug-drug interaction medication error [Unknown]
  - Overdose [Unknown]
